FAERS Safety Report 5220540-5 (Version None)
Quarter: 2007Q1

REPORT INFORMATION
  Report Type: 
  Country: None (occurrence: None)
  Receive Date: 20070125
  Receipt Date: 20070125
  Transmission Date: 20070707
  Serious: Yes (Hospitalization)
  Sender: FDA-Public Use
  Company Number: None

PATIENT
  Sex: Female

DRUGS (8)
  1. AVELOX [Suspect]
     Indication: INFECTION
     Dosage: PO
     Route: 048
     Dates: start: 20060623
  2. NORCO [Concomitant]
  3. SKELAXIN [Concomitant]
  4. ZANAFLEX [Concomitant]
  5. WELLBUTRIN [Concomitant]
  6. ZOLOFT [Concomitant]
  7. SECTRAL [Concomitant]
  8. AVENZA [Concomitant]

REACTIONS (7)
  - DYSPNOEA [None]
  - EYE PRURITUS [None]
  - EYE SWELLING [None]
  - LACRIMATION INCREASED [None]
  - SWELLING FACE [None]
  - THROAT IRRITATION [None]
  - URTICARIA [None]
